FAERS Safety Report 14169869 (Version 1)
Quarter: 2017Q4

REPORT INFORMATION
  Report Type: Spontaneous
  Country: US (occurrence: None)
  Receive Date: 20171107
  Receipt Date: 20171107
  Transmission Date: 20180321
  Serious: Yes (Hospitalization)
  Sender: FDA-Public Use
  Company Number: None

PATIENT
  Age: 59 Year
  Sex: Male
  Weight: 87 kg

DRUGS (2)
  1. CLOPIDOGREL [Suspect]
     Active Substance: CLOPIDOGREL BISULFATE
     Indication: ANTIPLATELET THERAPY
     Route: 048
     Dates: start: 20161026, end: 20161107
  2. ASPIRIN. [Suspect]
     Active Substance: ASPIRIN
     Indication: ANTIPLATELET THERAPY
     Route: 048
     Dates: start: 20150528, end: 20161107

REACTIONS (6)
  - Rectal haemorrhage [None]
  - Dizziness [None]
  - Fatigue [None]
  - Haemoglobin decreased [None]
  - Gastrointestinal haemorrhage [None]
  - Occult blood positive [None]

NARRATIVE: CASE EVENT DATE: 20161107
